FAERS Safety Report 25577413 (Version 6)
Quarter: 2025Q3

REPORT INFORMATION
  Report Type: Spontaneous
  Country: JP (occurrence: JP)
  Receive Date: 20250718
  Receipt Date: 20250925
  Transmission Date: 20251020
  Serious: Yes (Disabling, Other)
  Sender: OTSUKA
  Company Number: JP-MMM-Otsuka-5EJ9284X

PATIENT
  Age: 89 Year
  Sex: Female

DRUGS (6)
  1. REXULTI [Suspect]
     Active Substance: BREXPIPRAZOLE
     Indication: Dementia Alzheimer^s type
     Dosage: 1 MG, DAILY
     Route: 048
     Dates: start: 20250522, end: 20250711
  2. REXULTI [Suspect]
     Active Substance: BREXPIPRAZOLE
     Indication: Aggression
  3. REXULTI [Suspect]
     Active Substance: BREXPIPRAZOLE
     Indication: Psychomotor hyperactivity
  4. REXULTI [Suspect]
     Active Substance: BREXPIPRAZOLE
     Indication: Dementia Alzheimer^s type
     Dosage: 0.5 MG, DAILY
     Route: 048
     Dates: start: 20250424, end: 20250521
  5. REXULTI [Suspect]
     Active Substance: BREXPIPRAZOLE
     Indication: Aggression
  6. REXULTI [Suspect]
     Active Substance: BREXPIPRAZOLE
     Indication: Psychomotor hyperactivity

REACTIONS (12)
  - Dementia Alzheimer^s type [Recovering/Resolving]
  - Posture abnormal [Recovering/Resolving]
  - Mastication disorder [Recovering/Resolving]
  - Hypophagia [Recovering/Resolving]
  - Gait disturbance [Unknown]
  - Asthenia [Recovering/Resolving]
  - Dysphagia [Recovering/Resolving]
  - Salivary hypersecretion [Recovering/Resolving]
  - Dizziness [Recovering/Resolving]
  - Sedation [Recovering/Resolving]
  - Therapy non-responder [Unknown]
  - Wheelchair user [Unknown]

NARRATIVE: CASE EVENT DATE: 20250711
